FAERS Safety Report 6089042-0 (Version None)
Quarter: 2009Q1

REPORT INFORMATION
  Report Type: 
  Country: None (occurrence: None)
  Receive Date: 20090224
  Receipt Date: 20090218
  Transmission Date: 20090719
  Serious: Yes (Congenital Anomaly)
  Sender: FDA-Public Use
  Company Number: A0770029A

PATIENT

DRUGS (4)
  1. BUPROPION HCL [Suspect]
     Indication: BIPOLAR DISORDER
     Dosage: 100MG PER DAY
     Dates: start: 20081201, end: 20090201
  2. ZITHROMAX [Suspect]
     Dates: start: 20090101
  3. IRON [Concomitant]
  4. VITAMIN AND MINERAL PRENATAL SUPPLEMENT W/ FOLIC ACID CAP [Concomitant]

REACTIONS (3)
  - CONGENITAL CENTRAL NERVOUS SYSTEM ANOMALY [None]
  - CYTOGENETIC ABNORMALITY [None]
  - DRUG EXPOSURE DURING PREGNANCY [None]
